FAERS Safety Report 9383071 (Version 2)
Quarter: 2014Q1

REPORT INFORMATION
  Report Type: Report from Study
  Country: JP (occurrence: JP)
  Receive Date: 20130704
  Receipt Date: 20140305
  Transmission Date: 20141002
  Serious: Yes (Death, Life-Threatening, Disabling)
  Sender: FDA-Public Use
  Company Number: JP-ROCHE-1244353

PATIENT
  Age: 85 Year
  Sex: Male

DRUGS (2)
  1. ALTEPLASE [Suspect]
     Indication: EMBOLIC STROKE
     Route: 042
     Dates: start: 20120809, end: 20120809
  2. RADICUT [Suspect]
     Indication: EMBOLIC STROKE
     Route: 041
     Dates: start: 20120809, end: 20120809

REACTIONS (2)
  - Pneumonia [Fatal]
  - Cerebral haemorrhage [Not Recovered/Not Resolved]
